FAERS Safety Report 20724949 (Version 1)
Quarter: 2022Q2

REPORT INFORMATION
  Report Type: Spontaneous
  Country: US (occurrence: None)
  Receive Date: 20220418
  Receipt Date: 20220418
  Transmission Date: 20220720
  Serious: Yes (Other)
  Sender: FDA-Public Use
  Company Number: None

PATIENT
  Sex: Female
  Weight: 90 kg

DRUGS (4)
  1. LAMOTRIGINE [Suspect]
     Active Substance: LAMOTRIGINE
     Indication: Depression
     Dosage: OTHER QUANTITY : 1 TABLET(S);?FREQUENCY : AT BEDTIME;?
     Route: 048
     Dates: start: 20220323, end: 20220418
  2. LAMOTRIGINE [Concomitant]
     Active Substance: LAMOTRIGINE
  3. PEPTO-BISMOL [Concomitant]
     Active Substance: BISMUTH SUBSALICYLATE
  4. TYLENOL [Concomitant]
     Active Substance: ACETAMINOPHEN

REACTIONS (19)
  - Motion sickness [None]
  - Erythema nodosum [None]
  - Cutaneous sarcoidosis [None]
  - Impaired work ability [None]
  - Palpitations [None]
  - Hypophagia [None]
  - Abdominal discomfort [None]
  - Dry mouth [None]
  - Nausea [None]
  - Vomiting [None]
  - Diarrhoea [None]
  - Myalgia [None]
  - Fatigue [None]
  - Headache [None]
  - Photophobia [None]
  - Eye movement disorder [None]
  - Feeling hot [None]
  - Pain in extremity [None]
  - Dyspepsia [None]
